FAERS Safety Report 9901788 (Version 2)
Quarter: 2014Q1

REPORT INFORMATION
  Report Type: Spontaneous
  Country: US (occurrence: US)
  Receive Date: 20140217
  Receipt Date: 20140217
  Transmission Date: 20141002
  Serious: Yes (Hospitalization)
  Sender: FDA-Public Use
  Company Number: US-GLAXOSMITHKLINE-A0833422A

PATIENT
  Age: 48 Year
  Sex: Female
  Weight: 58.2 kg

DRUGS (2)
  1. AVANDIA [Suspect]
     Indication: DIABETES MELLITUS
     Dosage: 8MG PER DAY
     Route: 048
     Dates: start: 20020822, end: 20070722
  2. AVANDAMET [Suspect]
     Indication: DIABETES MELLITUS
     Dates: start: 20030116, end: 20030908

REACTIONS (4)
  - Angina unstable [Unknown]
  - Thrombosis [Unknown]
  - Coronary artery disease [Unknown]
  - Cardiac disorder [Unknown]
